FAERS Safety Report 6061174-2 (Version None)
Quarter: 2009Q1

REPORT INFORMATION
  Report Type: 
  Country: None (occurrence: None)
  Receive Date: 20090202
  Receipt Date: 20090126
  Transmission Date: 20090719
  Serious: Yes (Death, Hospitalization)
  Sender: FDA-Public Use
  Company Number: GB-ASTRAZENECA-2009GB00345

PATIENT
  Age: 90 Year
  Sex: Female

DRUGS (6)
  1. OMEPRAZOLE [Suspect]
     Route: 048
     Dates: end: 20080813
  2. OMEPRAZOLE [Suspect]
     Route: 048
     Dates: start: 20080813, end: 20080826
  3. TRIFLUOPERAZINE [Suspect]
     Dates: end: 20080828
  4. ATENOLOL [Concomitant]
     Route: 065
  5. ENALAPRIL MALEATE [Concomitant]
  6. FERROUS SULPHATE [Concomitant]

REACTIONS (7)
  - ACUTE HEPATIC FAILURE [None]
  - BLOOD BILIRUBIN INCREASED [None]
  - DYSPHAGIA [None]
  - HEPATIC ENCEPHALOPATHY [None]
  - MALAISE [None]
  - TRANSAMINASES INCREASED [None]
  - VOMITING [None]
